FAERS Safety Report 9470848 (Version 2)
Quarter: 2013Q3

REPORT INFORMATION
  Report Type: Spontaneous
  Country: JP (occurrence: JP)
  Receive Date: 20130822
  Receipt Date: 20130906
  Transmission Date: 20140515
  Serious: Yes (Death)
  Sender: FDA-Public Use
  Company Number: JP-ABBOTT-13P-087-1136223-00

PATIENT
  Age: 71 Year
  Sex: Male
  Weight: 68.8 kg

DRUGS (1)
  1. HUMIRA [Suspect]
     Indication: CROHN^S DISEASE
     Route: 058
     Dates: start: 20130815, end: 20130815

REACTIONS (3)
  - Multi-organ failure [Fatal]
  - Cardiac failure [Fatal]
  - Renal failure [Fatal]
